FAERS Safety Report 15122558 (Version 2)
Quarter: 2018Q3

REPORT INFORMATION
  Report Type: Spontaneous
  Country: US (occurrence: US)
  Receive Date: 20180709
  Receipt Date: 20180816
  Transmission Date: 20181010
  Serious: Yes (Hospitalization)
  Sender: FDA-Public Use
  Company Number: US-BEH-2018092535

PATIENT
  Age: 11 Year
  Sex: Male
  Weight: 53.97 kg

DRUGS (18)
  1. HIZENTRA [Suspect]
     Active Substance: HUMAN IMMUNOGLOBULIN G
     Indication: PRODUCT USED FOR UNKNOWN INDICATION
     Dosage: UNK
     Route: 058
  2. FLOVENT [Concomitant]
     Active Substance: FLUTICASONE PROPIONATE
  3. SALINE                             /00075401/ [Concomitant]
     Active Substance: SODIUM CHLORIDE
  4. BETAMETHASONE. [Concomitant]
     Active Substance: BETAMETHASONE
  5. DIPHENHYDRAMINE. [Concomitant]
     Active Substance: DIPHENHYDRAMINE
  6. LINEZOLID. [Concomitant]
     Active Substance: LINEZOLID
  7. BUDESONIDE. [Concomitant]
     Active Substance: BUDESONIDE
  8. ACETAMINOPHEN. [Concomitant]
     Active Substance: ACETAMINOPHEN
  9. HIZENTRA [Suspect]
     Active Substance: HUMAN IMMUNOGLOBULIN G
     Dosage: 8 G, QW
     Route: 058
     Dates: start: 20180330
  10. EPINEPHRINE. [Concomitant]
     Active Substance: EPINEPHRINE
  11. LIDOCAINE. [Concomitant]
     Active Substance: LIDOCAINE
  12. PRILOCAINE [Concomitant]
     Active Substance: PRILOCAINE
  13. MONTELUKAST [Concomitant]
     Active Substance: MONTELUKAST SODIUM
  14. TACROLIMUS. [Concomitant]
     Active Substance: TACROLIMUS
  15. LORATADINE. [Concomitant]
     Active Substance: LORATADINE
  16. SODIUM CHLORIDE. [Concomitant]
     Active Substance: SODIUM CHLORIDE
  17. KETOCONAZOLE. [Concomitant]
     Active Substance: KETOCONAZOLE
  18. SULFAMETHOXAZOLE AND TRIMETHOPRIM [Concomitant]
     Active Substance: SULFAMETHOXAZOLE\TRIMETHOPRIM

REACTIONS (1)
  - Varicella virus test positive [Unknown]

NARRATIVE: CASE EVENT DATE: 20180616
